FAERS Safety Report 4433102-4 (Version None)
Quarter: 2004Q3

REPORT INFORMATION
  Report Type: 
  Country: None (occurrence: None)
  Receive Date: 20040823
  Receipt Date: 20040808
  Transmission Date: 20050211
  Serious: Yes (Other)
  Sender: FDA-Public Use
  Company Number: 04-303-2159

PATIENT
  Age: 47 Year
  Sex: Male
  Weight: 56.6996 kg

DRUGS (1)
  1. DICYCLOMINE HCL INJ [Suspect]
     Dosage: 10 MG IV X 1
     Route: 042
     Dates: start: 20040808

REACTIONS (3)
  - BRADYCARDIA [None]
  - DIZZINESS [None]
  - MEDICATION ERROR [None]
